FAERS Safety Report 7244396-4 (Version None)
Quarter: 2011Q1

REPORT INFORMATION
  Report Type: 
  Country: None (occurrence: None)
  Receive Date: 20110125
  Receipt Date: 20100603
  Transmission Date: 20110831
  Serious: No
  Sender: FDA-Public Use
  Company Number: US-PFIZER INC-2010069844

PATIENT
  Sex: Female

DRUGS (7)
  1. ARGATROBAN [Suspect]
     Dosage: 12 MCG/KG/MIN
     Route: 042
  2. ARGATROBAN [Suspect]
     Indication: HEPARIN-INDUCED THROMBOCYTOPENIA
     Dosage: 30 MCG/KG/MIN
     Route: 042
  3. ARGATROBAN [Suspect]
     Indication: ORTHOPEDIC PROCEDURE
     Dosage: 25 MCG/KG/MIN
     Route: 042
  4. ARGATROBAN [Suspect]
     Dosage: 20 MCG/KG/MIN
     Route: 042
  5. ARGATROBAN [Suspect]
     Dosage: 10 MCG/KG/MIN
     Route: 042
  6. ATIVAN [Concomitant]
     Dosage: UNK, AS NEEDED
  7. METOPROLOL [Concomitant]
     Dosage: UNK

REACTIONS (1)
  - ACTIVATED PARTIAL THROMBOPLASTIN TIME PROLONGED [None]
